FAERS Safety Report 7363695-9 (Version None)
Quarter: 2011Q1

REPORT INFORMATION
  Report Type: 
  Country: None (occurrence: None)
  Receive Date: 20110321
  Receipt Date: 20101229
  Transmission Date: 20110831
  Serious: No
  Sender: FDA-Public Use
  Company Number: A0902030A

PATIENT
  Age: 83 Year
  Sex: Female

DRUGS (2)
  1. PROMACTA [Suspect]
     Dosage: 25MG PER DAY
     Route: 048
     Dates: start: 20091101
  2. NO CONCURRENT MEDICATION [Concomitant]

REACTIONS (1)
  - VULVOVAGINAL PRURITUS [None]
